FAERS Safety Report 5034479-1 (Version None)
Quarter: 2006Q2

REPORT INFORMATION
  Report Type: 
  Country: None (occurrence: None)
  Receive Date: 20060620
  Receipt Date: 20060607
  Transmission Date: 20061013
  Serious: Yes (Hospitalization)
  Sender: FDA-Public Use
  Company Number: 221141

PATIENT
  Age: 65 Year
  Sex: Male

DRUGS (9)
  1. AVASTIN [Suspect]
     Indication: COLON CANCER
     Dosage: 470 MG Q3W INTRAVENOUS
     Route: 042
     Dates: start: 20050913, end: 20060606
  2. CAPECITABINE (CAPECITABINE) [Suspect]
     Indication: COLON CANCER
     Dosage: 1650 MG BID ORAL
     Route: 048
     Dates: start: 20050913
  3. OXALIPLATIN (OXALIPLATIN) [Suspect]
     Indication: COLON CANCER
     Dosage: 130 MG Q3W INTRAVENOUS
     Route: 042
     Dates: start: 20050913, end: 20051004
  4. MAXOLON [Concomitant]
  5. PANADOL (ACETAMINOPHEN) [Concomitant]
  6. OMEPRAZOLE [Concomitant]
  7. QUINAPRIL [Concomitant]
  8. IRBESARTAN [Concomitant]
  9. AMLODIPINE BESYLATE [Concomitant]

REACTIONS (10)
  - ACUTE PRERENAL FAILURE [None]
  - CAMPYLOBACTER INFECTION [None]
  - DEHYDRATION [None]
  - DIARRHOEA [None]
  - DIZZINESS [None]
  - DRUG HYPERSENSITIVITY [None]
  - NECK PAIN [None]
  - PAIN IN EXTREMITY [None]
  - RENAL FAILURE ACUTE [None]
  - VOMITING [None]
